FAERS Safety Report 19701890 (Version 2)
Quarter: 2021Q4

REPORT INFORMATION
  Report Type: Report from Study
  Country: BR (occurrence: BR)
  Receive Date: 20210814
  Receipt Date: 20211011
  Transmission Date: 20220304
  Serious: Yes (Hospitalization, Other)
  Sender: FDA-Public Use
  Company Number: BR-TAKEDA-2021TUS049143

PATIENT
  Age: 10 Year
  Sex: Male
  Weight: 52 kg

DRUGS (1)
  1. HEMO-8R [Suspect]
     Active Substance: ANTIHEMOPHILIC FACTOR, HUMAN RECOMBINANT
     Indication: Factor VIII deficiency
     Dosage: 2250 INTERNATIONAL UNIT, 1/WEEK
     Route: 042
     Dates: start: 2013

REACTIONS (7)
  - Appendicitis [Recovered/Resolved]
  - Intestinal perforation [Recovered/Resolved]
  - Adverse event [Unknown]
  - Haemoperitoneum [Unknown]
  - Vitello-intestinal duct remnant [Unknown]
  - Weight increased [Unknown]
  - Weight decreased [Recovered/Resolved]

NARRATIVE: CASE EVENT DATE: 20210620
